FAERS Safety Report 4429812-5 (Version None)
Quarter: 2004Q3

REPORT INFORMATION
  Report Type: 
  Country: None (occurrence: None)
  Receive Date: 20040817
  Receipt Date: 20040802
  Transmission Date: 20050211
  Serious: Yes (Hospitalization)
  Sender: FDA-Public Use
  Company Number: 04P-163-0259873-00

PATIENT
  Age: 69 Year
  Sex: Female
  Weight: 54.8852 kg

DRUGS (30)
  1. HUMIRA [Suspect]
     Indication: RHEUMATOID ARTHRITIS
     Dosage: 40 MG, 1 IN 2 WK, SUBCUTANEOUS
     Route: 058
     Dates: start: 20030901, end: 20040301
  2. HUMIRA [Suspect]
     Indication: RHEUMATOID ARTHRITIS
     Dosage: 40 MG, 1 IN 2 WK, SUBCUTANEOUS
     Route: 058
     Dates: end: 20040401
  3. RISEDRONATE SODIUM [Concomitant]
  4. HYDROXYCHLOROQUINE PHOSPHATE [Concomitant]
  5. SERTRALINE HYDROCHLORIDE [Concomitant]
  6. PANTOPRAZOLE [Concomitant]
  7. METHOTREXATE [Concomitant]
  8. FOLIC ACID [Concomitant]
  9. TREXALL [Concomitant]
  10. TRAMADOL HYDROCHLORIDE [Concomitant]
  11. GLUCOSAMINE W/CHONDROITIN SULFATES [Concomitant]
  12. CELECOXIB [Concomitant]
  13. OMEPRAZOLE [Concomitant]
  14. MELOXICAM [Concomitant]
  15. PREDNISONE [Concomitant]
  16. CITALOPRAM HYDROBROMIDE [Concomitant]
  17. LEFLUNOMIDE [Concomitant]
  18. FUROSEMIDE [Concomitant]
  19. BUCINDOLOL HYDROCHLORIDE [Concomitant]
  20. METAXALONE [Concomitant]
  21. TIZANIDINE HYDROCHLORIDE [Concomitant]
  22. ULTRACET [Concomitant]
  23. PROPACET 100 [Concomitant]
  24. CYCLOBENZAPRINE HYDROCHLORIDE [Concomitant]
  25. ETANERCEPT [Concomitant]
  26. GABAPENTIN [Concomitant]
  27. ZOLPIDEM TARTRATE [Concomitant]
  28. VICODIN [Concomitant]
  29. HYALURONATE SODIUM [Concomitant]
  30. RABEPRAZOLE SODIUM [Concomitant]

REACTIONS (4)
  - BODY HEIGHT DECREASED [None]
  - BREAST CANCER IN SITU [None]
  - RASH GENERALISED [None]
  - WEIGHT DECREASED [None]
